FAERS Safety Report 18506835 (Version 1)
Quarter: 2020Q4

REPORT INFORMATION
  Report Type: Spontaneous
  Country: US (occurrence: US)
  Receive Date: 20201113
  Receipt Date: 20201113
  Transmission Date: 20210114
  Serious: Yes (Hospitalization)
  Sender: FDA-Public Use
  Company Number: None

PATIENT
  Age: 56 Year
  Sex: Male
  Weight: 94.8 kg

DRUGS (4)
  1. IPILIMUMAB [Suspect]
     Active Substance: IPILIMUMAB
  2. HFSRT [Suspect]
     Active Substance: RADIATION THERAPY
  3. BEVACIZUMAB. [Suspect]
     Active Substance: BEVACIZUMAB
  4. NIVOLUMAB [Suspect]
     Active Substance: NIVOLUMAB

REACTIONS (3)
  - Diarrhoea [None]
  - Colitis [None]
  - Acute kidney injury [None]
